FAERS Safety Report 22863678 (Version 5)
Quarter: 2023Q4

REPORT INFORMATION
  Report Type: Spontaneous
  Country: DE (occurrence: None)
  Receive Date: 20230825
  Receipt Date: 20231227
  Transmission Date: 20240110
  Serious: Yes (Other)
  Sender: FDA-Public Use
  Company Number: DE-ROCHE-3389607

PATIENT
  Age: 72 Year
  Sex: Female
  Weight: 65 kg

DRUGS (16)
  1. HEMLIBRA [Suspect]
     Active Substance: EMICIZUMAB-KXWH
     Indication: Acquired haemophilia
     Dosage: THE LAST ADMINISTRATION OF HEMLIBRA: 02-JUN-2023, 09-JUN-2023 AND 16-JUN-2023.
     Route: 058
     Dates: start: 20230527
  2. HEMLIBRA [Suspect]
     Active Substance: EMICIZUMAB-KXWH
     Route: 058
     Dates: start: 20230602
  3. HEMLIBRA [Suspect]
     Active Substance: EMICIZUMAB-KXWH
     Route: 058
  4. HEMLIBRA [Suspect]
     Active Substance: EMICIZUMAB-KXWH
     Route: 058
     Dates: start: 20230527
  5. HEMLIBRA [Suspect]
     Active Substance: EMICIZUMAB-KXWH
     Route: 058
     Dates: start: 20230527
  6. CIPROFLOXACIN [Concomitant]
     Active Substance: CIPROFLOXACIN
     Indication: Urinary tract infection
     Dates: start: 202212
  7. NOVOSEVEN [Concomitant]
     Active Substance: COAGULATION FACTOR VIIA RECOMBINANT HUMAN
     Indication: Haemorrhage
     Dates: end: 20230526
  8. NOVOSEVEN [Concomitant]
     Active Substance: COAGULATION FACTOR VIIA RECOMBINANT HUMAN
     Dates: start: 20230526
  9. PREDNISOLONE [Concomitant]
     Active Substance: PREDNISOLONE
  10. ALFACALCIDOL [Concomitant]
     Active Substance: ALFACALCIDOL
  11. CALCIUM CARBONATE [Concomitant]
     Active Substance: CALCIUM CARBONATE
  12. INDAPAMIDE [Concomitant]
     Active Substance: INDAPAMIDE
  13. BISOPROLOL [Concomitant]
     Active Substance: BISOPROLOL\BISOPROLOL FUMARATE
  14. LOSARTAN [Concomitant]
     Active Substance: LOSARTAN
  15. LEVOTHYROXINE SODIUM [Concomitant]
     Active Substance: LEVOTHYROXINE SODIUM
  16. ALLOPURINOL [Concomitant]
     Active Substance: ALLOPURINOL

REACTIONS (7)
  - Haemolytic anaemia [Unknown]
  - Thrombocytopenia [Unknown]
  - Platelet count increased [Unknown]
  - Red blood cell schistocytes present [Unknown]
  - Factor V Leiden mutation [Not Recovered/Not Resolved]
  - Thrombotic microangiopathy [Unknown]
  - Off label use [Unknown]

NARRATIVE: CASE EVENT DATE: 20230527
